FAERS Safety Report 10942532 (Version 2)
Quarter: 2015Q2

REPORT INFORMATION
  Report Type: Spontaneous
  Country: US (occurrence: US)
  Receive Date: 20150322
  Receipt Date: 20150524
  Transmission Date: 20150821
  Serious: No
  Sender: FDA-Public Use
  Company Number: US-JNJFOC-20131008397

PATIENT
  Age: 57 Year
  Sex: Male
  Weight: 167.83 kg

DRUGS (11)
  1. INVOKANA [Suspect]
     Active Substance: CANAGLIFLOZIN
     Indication: TYPE 2 DIABETES MELLITUS
     Route: 048
     Dates: start: 20131001, end: 20131007
  2. METFORMIN [Concomitant]
     Active Substance: METFORMIN HYDROCHLORIDE
     Indication: TYPE 2 DIABETES MELLITUS
  3. MINOCYCLINE [Concomitant]
     Active Substance: MINOCYCLINE\MINOCYCLINE HYDROCHLORIDE
  4. COLCHICINE. [Concomitant]
     Active Substance: COLCHICINE
  5. GABAPENTIN. [Concomitant]
     Active Substance: GABAPENTIN
  6. REQUIP [Concomitant]
     Active Substance: ROPINIROLE HYDROCHLORIDE
  7. LISINOPRIL. [Concomitant]
     Active Substance: LISINOPRIL
  8. PANTOPRAZOLE [Concomitant]
     Active Substance: PANTOPRAZOLE SODIUM
  9. GLUCOPHAGE [Concomitant]
     Active Substance: METFORMIN HYDROCHLORIDE
  10. GLIPIZIDE. [Concomitant]
     Active Substance: GLIPIZIDE
  11. LEVOTHYROXINE [Concomitant]
     Active Substance: LEVOTHYROXINE

REACTIONS (2)
  - Skin candida [Recovered/Resolved]
  - Genital infection fungal [Recovered/Resolved]

NARRATIVE: CASE EVENT DATE: 201310
